FAERS Safety Report 18077195 (Version 33)
Quarter: 2025Q3

REPORT INFORMATION
  Report Type: Report from Study
  Country: US (occurrence: US)
  Receive Date: 20200728
  Receipt Date: 20250808
  Transmission Date: 20251021
  Serious: Yes (Hospitalization, Other)
  Sender: TAKEDA
  Company Number: US-SHIRE-US202024098

PATIENT
  Age: 77 Year
  Sex: Female
  Weight: 91 kg

DRUGS (45)
  1. HUMAN IMMUNOGLOBULIN G [Suspect]
     Active Substance: HUMAN IMMUNOGLOBULIN G
     Indication: Immunodeficiency common variable
     Dosage: 20 GRAM, Q2WEEKS
  2. HUMAN IMMUNOGLOBULIN G [Suspect]
     Active Substance: HUMAN IMMUNOGLOBULIN G
     Indication: B-lymphocyte abnormalities
     Dosage: 22 GRAM, Q2WEEKS
  3. DIPHENHYDRAMINE HYDROCHLORIDE [Concomitant]
     Active Substance: DIPHENHYDRAMINE HYDROCHLORIDE
  4. BUDESONIDE [Concomitant]
     Active Substance: BUDESONIDE
  5. POTASSIUM [Concomitant]
     Active Substance: POTASSIUM
  6. ZINC [Concomitant]
     Active Substance: ZINC
  7. ATORVASTATIN CALCIUM [Concomitant]
     Active Substance: ATORVASTATIN CALCIUM
  8. METOPROLOL SUCCINATE [Concomitant]
     Active Substance: METOPROLOL SUCCINATE
  9. QUERCETIN DIHYDRATE [Concomitant]
     Active Substance: QUERCETIN DIHYDRATE
  10. DIETARY SUPPLEMENT\RESVERATROL [Concomitant]
     Active Substance: DIETARY SUPPLEMENT\RESVERATROL
  11. HERBALS [Concomitant]
     Active Substance: HERBALS
  12. BIOTIN [Concomitant]
     Active Substance: BIOTIN
  13. CHROMIUM [Concomitant]
     Active Substance: CHROMIC CHLORIDE\CHROMIUM
  14. ACETAMINOPHEN [Concomitant]
     Active Substance: ACETAMINOPHEN
  15. VITAMIN E [Concomitant]
     Active Substance: .ALPHA.-TOCOPHEROL
  16. SLEEP AID (DIPHENHYDRAMINE HYDROCHLORIDE) [Concomitant]
     Active Substance: DIPHENHYDRAMINE HYDROCHLORIDE
  17. ENALAPRIL MALEATE [Concomitant]
     Active Substance: ENALAPRIL MALEATE
  18. VITAMIN D3 [Concomitant]
     Active Substance: CHOLECALCIFEROL
  19. VITAMIN C [Concomitant]
     Active Substance: ASCORBIC ACID
  20. LUTEIN [Concomitant]
     Active Substance: LUTEIN
  21. LEVOTHYROXINE SODIUM [Concomitant]
     Active Substance: LEVOTHYROXINE SODIUM
  22. VANADYL SULFATE [Concomitant]
     Active Substance: VANADYL SULFATE
  23. VITAMIN B COMPLEX [Concomitant]
     Active Substance: CYANOCOBALAMIN\DEXPANTHENOL\NIACINAMIDE\PYRIDOXINE HYDROCHLORIDE\RIBOFLAVIN 5^-PHOSPHATE SODIUM\THIA
  24. MONTELUKAST SODIUM [Concomitant]
     Active Substance: MONTELUKAST SODIUM
  25. HYDROCHLOROTHIAZIDE [Concomitant]
     Active Substance: HYDROCHLOROTHIAZIDE
  26. LIDOCAINE [Concomitant]
     Active Substance: LIDOCAINE
  27. COENZYME Q10 [Concomitant]
     Active Substance: DIETARY SUPPLEMENT\UBIDECARENONE
  28. HERBALS\TURMERIC [Concomitant]
     Active Substance: HERBALS\TURMERIC
  29. EPINEPHRINE [Concomitant]
     Active Substance: EPINEPHRINE
  30. ENALAPRIL [Concomitant]
     Active Substance: ENALAPRIL
  31. ASTAXANTHIN [Concomitant]
     Active Substance: ASTAXANTHIN
  32. FISH OIL [Concomitant]
     Active Substance: FISH OIL
  33. MELATONIN [Concomitant]
     Active Substance: MELATONIN
  34. DIETARY SUPPLEMENT [Concomitant]
     Active Substance: DIETARY SUPPLEMENT
  35. MENAQUINONE 6 [Concomitant]
     Active Substance: MENAQUINONE 6
  36. OLEA EUROPAEA LEAF [Concomitant]
     Active Substance: OLEA EUROPAEA LEAF
  37. CALCIUM\MAGNESIUM [Concomitant]
     Active Substance: CALCIUM\MAGNESIUM
  38. LEVOTHYROXINE [Concomitant]
     Active Substance: LEVOTHYROXINE
  39. SODIUM CHLORIDE [Concomitant]
     Active Substance: SODIUM CHLORIDE
  40. HYDROCHLOROTHIAZIDE [Concomitant]
     Active Substance: HYDROCHLOROTHIAZIDE
  41. FERRIC GLUCONATE TRIHYDRATE [Concomitant]
     Active Substance: FERRIC GLUCONATE TRIHYDRATE
  42. CHOLINE [Concomitant]
     Active Substance: CHOLINE
  43. MAGNESIUM CITRATE [Concomitant]
     Active Substance: MAGNESIUM CITRATE
  44. ELIQUIS [Concomitant]
     Active Substance: APIXABAN
  45. Coq [Concomitant]

REACTIONS (45)
  - Respiratory fume inhalation disorder [Unknown]
  - Pneumonia [Unknown]
  - Full blood count decreased [Unknown]
  - Precancerous condition [Unknown]
  - Fatigue [Unknown]
  - Eye infection [Unknown]
  - Rash macular [Unknown]
  - Stress [Unknown]
  - Weight increased [Unknown]
  - Back injury [Unknown]
  - Sinus disorder [Unknown]
  - Gait disturbance [Unknown]
  - Multiple allergies [Unknown]
  - Productive cough [Unknown]
  - Allergy to animal [Unknown]
  - Upper-airway cough syndrome [Unknown]
  - Weight decreased [Unknown]
  - Urinary tract infection [Unknown]
  - Seasonal allergy [Unknown]
  - Rhinitis [Recovered/Resolved]
  - Infection [Unknown]
  - Infusion site discharge [Unknown]
  - Chronic obstructive pulmonary disease [Unknown]
  - Allergic sinusitis [Unknown]
  - Aphonia [Unknown]
  - Needle issue [Unknown]
  - Nasopharyngitis [Unknown]
  - Inappropriate schedule of product administration [Unknown]
  - Gastrointestinal disorder [Unknown]
  - Chronic sinusitis [Unknown]
  - Upper respiratory tract infection [Unknown]
  - Asthma [Unknown]
  - Infusion site haemorrhage [Unknown]
  - Feeling abnormal [Unknown]
  - Amnesia [Unknown]
  - Rhinorrhoea [Unknown]
  - Asthenia [Not Recovered/Not Resolved]
  - Anaemia [Unknown]
  - Injection site pruritus [Unknown]
  - Cough [Unknown]
  - Erythema [Unknown]
  - Back pain [Unknown]
  - Infusion site pain [Unknown]
  - Pruritus [Unknown]
  - Headache [Unknown]

NARRATIVE: CASE EVENT DATE: 20220401
